FAERS Safety Report 11379939 (Version 1)
Quarter: 2015Q3

REPORT INFORMATION
  Report Type: Spontaneous
  Country: PT (occurrence: PT)
  Receive Date: 20150814
  Receipt Date: 20150814
  Transmission Date: 20151125
  Serious: Yes (Hospitalization, Other)
  Sender: FDA-Public Use
  Company Number: PT-ACCORD-032870

PATIENT
  Age: 61 Year
  Sex: Female

DRUGS (11)
  1. MYCOPHENOLIC ACID. [Suspect]
     Active Substance: MYCOPHENOLIC ACID
     Indication: RENAL TRANSPLANT
     Dosage: RECEIVED AS INDUCTION, THEN MAINTENANCE IMMUNOSUPPRESSION
  2. VALGANCICLOVIR/VALGANCICLOVIR HYDROCHLORIDE [Concomitant]
  3. DARBEPOETIN ALFA [Concomitant]
     Active Substance: DARBEPOETIN ALFA
     Dosage: 20 MG ON ALTERNATE WEEKS
  4. OMEPRAZOLE. [Concomitant]
     Active Substance: OMEPRAZOLE
  5. ALPRAZOLAM. [Concomitant]
     Active Substance: ALPRAZOLAM
  6. CICLOSPORIN [Concomitant]
     Active Substance: CYCLOSPORINE
  7. PREDNISONE. [Suspect]
     Active Substance: PREDNISONE
     Indication: RENAL TRANSPLANT
     Dosage: RECEIVED AS INDUCTION, THEN MAINTENANCE IMMUNOSUPPRESSION
  8. FUROSEMIDE. [Concomitant]
     Active Substance: FUROSEMIDE
  9. CARVEDILOL/CARVEDILOL HYDROCHLODRIDE [Concomitant]
  10. TACROLIMUS. [Suspect]
     Active Substance: TACROLIMUS
     Indication: RENAL TRANSPLANT
     Dosage: RECEIVED AS INDUCTION, THEN MAINTENANCE IMMUNOSUPPRESSION
  11. SULFAMETHOXAZOLE/TRIMETHOPRIM [Concomitant]
     Dosage: 960 MG ON ALTERNATE DAYS

REACTIONS (6)
  - Pneumocystis jirovecii pneumonia [Unknown]
  - Posterior reversible encephalopathy syndrome [Recovered/Resolved]
  - Bronchopulmonary aspergillosis [Recovering/Resolving]
  - Diabetes mellitus [Unknown]
  - Clear cell renal cell carcinoma [Unknown]
  - Drug level increased [Unknown]
